FAERS Safety Report 5533278-1 (Version None)
Quarter: 2007Q4

REPORT INFORMATION
  Report Type: 
  Country: None (occurrence: None)
  Receive Date: 20071204
  Receipt Date: 20071130
  Transmission Date: 20080405
  Serious: Yes (Other)
  Sender: FDA-Public Use
  Company Number: D0055326A

PATIENT
  Sex: Female

DRUGS (5)
  1. ZANTAC [Suspect]
     Route: 048
  2. BUSCOPAN [Suspect]
     Route: 048
  3. NEXIUM [Suspect]
     Route: 048
  4. RHINOPRONT [Suspect]
     Route: 048
  5. ALCOHOL [Suspect]
     Route: 048

REACTIONS (1)
  - SUICIDE ATTEMPT [None]
